FAERS Safety Report 8522699-0 (Version None)
Quarter: 2012Q3

REPORT INFORMATION
  Report Type: 
  Country: None (occurrence: None)
  Receive Date: 20120719
  Receipt Date: 20120713
  Transmission Date: 20120928
  Serious: Yes (Hospitalization)
  Sender: FDA-Public Use
  Company Number: US-GLAXOSMITHKLINE-A0984951A

PATIENT
  Age: 49 Year
  Sex: Female
  Weight: 88.2 kg

DRUGS (20)
  1. SUDAFED 12 HOUR [Concomitant]
  2. ASPIRIN [Concomitant]
  3. PAZOPANIB [Suspect]
     Indication: COLON CANCER
     Dosage: 800MG PER DAY
     Route: 048
     Dates: start: 20120626
  4. LIPITOR [Concomitant]
  5. INSULIN [Concomitant]
  6. L-LYSINE [Concomitant]
  7. INVESTIGATIONAL DRUG [Suspect]
     Indication: COLON CANCER
     Dosage: 950.4MG TWO TIMES PER WEEK
     Route: 042
     Dates: start: 20120626, end: 20120710
  8. NEXIUM [Concomitant]
  9. LANTUS [Concomitant]
  10. MORPHINE SULFATE [Concomitant]
  11. PERCOCET [Concomitant]
  12. IMODIUM [Concomitant]
  13. LOTREL [Concomitant]
  14. TYLENOL [Concomitant]
  15. NADOLOL [Concomitant]
  16. TRICOR [Concomitant]
  17. GLIPIZIDE [Concomitant]
  18. GABAPENTIN [Concomitant]
  19. LOMOTIL [Concomitant]
  20. NOVOLOG [Concomitant]

REACTIONS (2)
  - ODYNOPHAGIA [None]
  - VAGINAL INFLAMMATION [None]
